FAERS Safety Report 18712216 (Version 1)
Quarter: 2021Q1

REPORT INFORMATION
  Report Type: Spontaneous
  Country: US (occurrence: US)
  Receive Date: 20210107
  Receipt Date: 20210107
  Transmission Date: 20210419
  Serious: Yes (Other)
  Sender: FDA-Public Use
  Company Number: US-BIOVITRUM-2021US0133

PATIENT
  Sex: Male
  Weight: 3 kg

DRUGS (3)
  1. LASIX [Concomitant]
     Active Substance: FUROSEMIDE
     Dosage: 20 MG TABLET
  2. SYNAGIS [Suspect]
     Active Substance: PALIVIZUMAB
     Indication: ANTIVIRAL PROPHYLAXIS
     Dosage: 50MG/0.5ML VL LIQUID
     Route: 030
     Dates: start: 202011
  3. ASPIRIN. [Concomitant]
     Active Substance: ASPIRIN
     Dosage: 325 MG TABLET

REACTIONS (2)
  - Product dose omission issue [Unknown]
  - Shunt thrombosis [Unknown]
